FAERS Safety Report 7452830-X (Version None)
Quarter: 2011Q2

REPORT INFORMATION
  Report Type: 
  Country: None (occurrence: None)
  Receive Date: 20110502
  Receipt Date: 20110321
  Transmission Date: 20111010
  Serious: Yes (Other)
  Sender: FDA-Public Use
  Company Number: US-BAYER-2010-002070

PATIENT
  Sex: Female
  Weight: 107 kg

DRUGS (8)
  1. NAPROXEN [Concomitant]
     Dosage: UNK
     Dates: start: 20090601
  2. CLARITIN-D [Concomitant]
     Dosage: UNK
     Dates: start: 20090601
  3. YAZ [Suspect]
     Indication: PRODUCT USED FOR UNKNOWN INDICATION
     Route: 048
  4. YASMIN [Suspect]
     Indication: PREMENSTRUAL SYNDROME
     Route: 048
  5. OCELLA [Suspect]
     Indication: PREMENSTRUAL SYNDROME
  6. HYDROCHLOROTHIAZIDE [Concomitant]
     Dosage: UNK
     Dates: start: 20090501
  7. VERAPAMIL [Concomitant]
     Dosage: UNK
     Dates: start: 20090501
  8. PREDNISONE [Concomitant]
     Dosage: UNK
     Dates: start: 20090701

REACTIONS (1)
  - HEPATIC FAILURE [None]
